FAERS Safety Report 9671653 (Version 2)
Quarter: 2014Q1

REPORT INFORMATION
  Report Type: Spontaneous
  Country: US (occurrence: US)
  Receive Date: 20131106
  Receipt Date: 20140113
  Transmission Date: 20141002
  Serious: Yes (Death)
  Sender: FDA-Public Use
  Company Number: US-PFIZER INC-2013315026

PATIENT
  Age: 45 Year
  Sex: Male

DRUGS (14)
  1. SUTENT [Suspect]
     Indication: PANCREATIC CARCINOMA
     Dosage: 12.5 MG, 3 TABS, DAILY
     Dates: start: 20130925
  2. HUMULIN [Concomitant]
     Dosage: 20 IU, 2X/DAY BEFORE MEALS
     Route: 058
  3. INSULIN LISPRO [Concomitant]
     Dosage: 2 IU TO 12 IU BEFORE MEALS
     Route: 058
  4. INSULIN LISPRO [Concomitant]
     Dosage: 2 IU AT BEDTIME
     Route: 058
  5. LISINOPRIL [Concomitant]
     Dosage: 20 MG, 2X/DAY
     Route: 048
  6. LOVENOX [Concomitant]
     Dosage: 40 MG, 1X/DAY
     Route: 058
  7. RIFADIN [Concomitant]
     Dosage: 150 MG, 2X/DAY
     Route: 048
  8. BANOPHEN [Concomitant]
     Dosage: 50 MG, EVERY 6 HOURS AS NEEDED
     Route: 048
  9. BISACODYL [Concomitant]
     Dosage: 10 MG, EVERY DAY AS NEEDED
     Route: 054
  10. GLUCOSE [Concomitant]
     Dosage: 50 ML, AS NEEDED
     Route: 042
  11. GLUCOSE [Concomitant]
     Dosage: 25 ML, AS NEEDED
     Route: 042
  12. GLUCOSE [Concomitant]
     Dosage: 30 MG, AS NEEDED
     Route: 048
  13. ONDANSETRON [Concomitant]
     Dosage: 4 MG, EVERY 6 HOURS AS NEEDED
     Route: 042
  14. TRAZODONE [Concomitant]
     Dosage: 500 MG, DAILY AT BEDTIME (TO BE REPEATED AS NEEDED)

REACTIONS (2)
  - Disease progression [Fatal]
  - Pancreatic carcinoma [Fatal]
